FAERS Safety Report 11989113 (Version 1)
Quarter: 2016Q1

REPORT INFORMATION
  Report Type: Spontaneous
  Country: US (occurrence: US)
  Receive Date: 20160202
  Receipt Date: 20160202
  Transmission Date: 20160526
  Serious: No
  Sender: FDA-Public Use
  Company Number: US-MYLANLABS-2015M1025313

PATIENT
  Sex: Male

DRUGS (1)
  1. FONDAPARINUX INJECTION [Suspect]
     Active Substance: FONDAPARINUX
     Dosage: 7.5 MG, QD
     Route: 058
     Dates: start: 201507

REACTIONS (1)
  - Injection site bruising [Not Recovered/Not Resolved]

NARRATIVE: CASE EVENT DATE: 201507
